FAERS Safety Report 6127296-2 (Version None)
Quarter: 2009Q1

REPORT INFORMATION
  Report Type: 
  Country: None (occurrence: None)
  Receive Date: 20090319
  Receipt Date: 20090312
  Transmission Date: 20090719
  Serious: Yes (Other)
  Sender: FDA-Public Use
  Company Number: 2009-00936

PATIENT
  Age: 58 Year
  Sex: Female
  Weight: 62.1 kg

DRUGS (7)
  1. VELCADE [Suspect]
     Indication: MANTLE CELL LYMPHOMA
     Dosage: 1.3 MG/M2, IV BOLUS
     Route: 040
     Dates: start: 20080124, end: 20080127
  2. RITUXIMAB(RITUXIMAB) INJECTION, 375MG/M2 [Suspect]
     Indication: MANTLE CELL LYMPHOMA
     Dosage: 375 MG/M2, INTRAVENOUS
     Route: 042
     Dates: start: 20080124, end: 20080124
  3. CYCLOPHOSPHAMIDE [Suspect]
     Indication: MANTLE CELL LYMPHOMA
     Dosage: 300 MG/M2, INTRAVENOUS
     Route: 042
     Dates: start: 20080124, end: 20080126
  4. DOXORUBICIN HCL [Suspect]
     Indication: MANTLE CELL LYMPHOMA
     Dosage: 25 MG/M2, INTRAVENOUS
     Route: 042
     Dates: start: 20080124, end: 20080125
  5. VINCRISTINE [Suspect]
     Indication: MANTLE CELL LYMPHOMA
     Dosage: 1 MG, INTRAVENOUS
     Route: 042
     Dates: start: 20080126, end: 20080126
  6. DEXAMETHASONE [Suspect]
     Indication: MANTLE CELL LYMPHOMA
     Dosage: 40 MG
     Dates: start: 20080124, end: 20080127
  7. NEULASTA [Suspect]
     Indication: MANTLE CELL LYMPHOMA
     Dosage: 6 MG, SUBCUTANEOUS
     Route: 058
     Dates: start: 20080129, end: 20080129

REACTIONS (2)
  - ALOPECIA [None]
  - LYMPHOPENIA [None]
